FAERS Safety Report 13949512 (Version 1)
Quarter: 2017Q3

REPORT INFORMATION
  Report Type: Spontaneous
  Country: US (occurrence: US)
  Receive Date: 20170908
  Receipt Date: 20170908
  Transmission Date: 20171128
  Serious: No
  Sender: FDA-Public Use
  Company Number: US-GLAXOSMITHKLINE-US2017137679

PATIENT
  Sex: Female

DRUGS (16)
  1. ADVAIR DISKUS [Suspect]
     Active Substance: FLUTICASONE PROPIONATE\SALMETEROL XINAFOATE
     Dosage: 1 PUFF(S), BID
     Route: 055
     Dates: start: 20170902
  2. ESCITALOPRAM [Concomitant]
     Active Substance: ESCITALOPRAM OXALATE
  3. ADVAIR DISKUS [Suspect]
     Active Substance: FLUTICASONE PROPIONATE\SALMETEROL XINAFOATE
     Indication: DYSPNOEA
     Dosage: 1 PUFF(S), QD
     Route: 055
     Dates: start: 201708, end: 20170901
  4. VITAMIN B12 [Concomitant]
     Active Substance: CYANOCOBALAMIN
  5. BENAZEPRIL [Concomitant]
     Active Substance: BENAZEPRIL HYDROCHLORIDE
  6. SUCRALFATE. [Concomitant]
     Active Substance: SUCRALFATE
  7. VITAMIN C [Concomitant]
     Active Substance: ASCORBIC ACID
  8. DOCUSATE SODIUM. [Concomitant]
     Active Substance: DOCUSATE SODIUM
  9. AMLODIPINE [Concomitant]
     Active Substance: AMLODIPINE BESYLATE
  10. PRESERVISION [Concomitant]
     Active Substance: MINERALS\VITAMINS
  11. RANITIDINE. [Concomitant]
     Active Substance: RANITIDINE
  12. ASPIRIN (BABY) [Concomitant]
     Active Substance: ASPIRIN
  13. HYDROCHLOROTHIAZIDE. [Concomitant]
     Active Substance: HYDROCHLOROTHIAZIDE
  14. MELATONIN [Concomitant]
     Active Substance: MELATONIN
  15. TYLENOL [Concomitant]
     Active Substance: ACETAMINOPHEN
  16. CALCIUM [Concomitant]
     Active Substance: CALCIUM

REACTIONS (6)
  - Tremor [Unknown]
  - Drug ineffective [Unknown]
  - Condition aggravated [Unknown]
  - Dizziness [Unknown]
  - Dysphonia [Unknown]
  - Underdose [Unknown]
